FAERS Safety Report 9999590 (Version 1)
Quarter: 2014Q1

REPORT INFORMATION
  Report Type: Spontaneous
  Country: US (occurrence: None)
  Receive Date: 20140228
  Receipt Date: 20140228
  Transmission Date: 20141002
  Serious: Yes (Hospitalization)
  Sender: FDA-Public Use
  Company Number: PHEH2013US003322

PATIENT
  Age: 46 Year
  Sex: Female
  Weight: 52.2 kg

DRUGS (3)
  1. TEGRETOL [Suspect]
     Indication: HEADACHE
     Route: 048
     Dates: start: 20121115, end: 20121127
  2. ERGOCALCIFEROL (ERGOCALCIFEROL) [Concomitant]
  3. AMITRIPTYLINE (AMITRIPTYLINE) [Concomitant]

REACTIONS (5)
  - Toxic epidermal necrolysis [None]
  - Stevens-Johnson syndrome [None]
  - Rash erythematous [None]
  - Rash maculo-papular [None]
  - Skin plaque [None]
